FAERS Safety Report 6357010-7 (Version None)
Quarter: 2009Q3

REPORT INFORMATION
  Report Type: 
  Country: None (occurrence: None)
  Receive Date: 20090915
  Receipt Date: 20090907
  Transmission Date: 20100115
  Serious: Yes (Other)
  Sender: FDA-Public Use
  Company Number: CZ-AMGEN-US341212

PATIENT
  Age: 41 Year
  Sex: Female

DRUGS (2)
  1. ENBREL [Suspect]
     Indication: ANKYLOSING SPONDYLITIS
     Dosage: 50 MG ONCE WEEKY FROM UNKNOWN DATE TO 30-MAR-2009; THERAPY RESUMED 8 WEEKS LATER
     Route: 058
  2. BRUFEN [Concomitant]
     Dosage: UNSPECIFIED DOSE OCCASIONALLY
     Route: 048

REACTIONS (1)
  - LATENT TUBERCULOSIS [None]
